FAERS Safety Report 8242876-6 (Version None)
Quarter: 2012Q1

REPORT INFORMATION
  Report Type: 
  Country: None (occurrence: None)
  Receive Date: 20120329
  Receipt Date: 20120323
  Transmission Date: 20120608
  Serious: Yes (Hospitalization, Other)
  Sender: FDA-Public Use
  Company Number: FR-PFIZER INC-2012076871

PATIENT
  Age: 75 Year
  Sex: Female

DRUGS (2)
  1. LYRICA [Suspect]
     Indication: EPILEPSY
  2. LYRICA [Suspect]
     Indication: SCIATICA
     Dosage: 500-600 MG DAILY

REACTIONS (4)
  - COMA [None]
  - DELUSION [None]
  - WITHDRAWAL SYNDROME [None]
  - AGGRESSION [None]
